FAERS Safety Report 11761343 (Version 1)
Quarter: 2015Q4

REPORT INFORMATION
  Report Type: Spontaneous
  Country: US (occurrence: US)
  Receive Date: 20151120
  Receipt Date: 20151120
  Transmission Date: 20160304
  Serious: No
  Sender: FDA-Public Use
  Company Number: US-ELI_LILLY_AND_COMPANY-US201209004392

PATIENT
  Age: 55 Year
  Sex: Female

DRUGS (4)
  1. FORTEO [Suspect]
     Active Substance: TERIPARATIDE
     Dosage: 20 UG, QD
  2. WELLBUTRIN [Concomitant]
     Active Substance: BUPROPION HYDROCHLORIDE
     Indication: MIGRAINE
     Dosage: UNK
  3. FORTEO [Suspect]
     Active Substance: TERIPARATIDE
     Indication: OSTEOPOROSIS
     Dosage: 20 UG, QD
     Dates: start: 20120907
  4. ATENOLOL. [Concomitant]
     Active Substance: ATENOLOL
     Indication: MIGRAINE
     Dosage: UNK

REACTIONS (13)
  - Upper respiratory tract congestion [Not Recovered/Not Resolved]
  - Drug hypersensitivity [Not Recovered/Not Resolved]
  - Dizziness [Unknown]
  - Nausea [Unknown]
  - Blood pressure fluctuation [Unknown]
  - Rash [Unknown]
  - Nasal congestion [Not Recovered/Not Resolved]
  - Dyspepsia [Unknown]
  - Throat irritation [Unknown]
  - Oral pruritus [Unknown]
  - Injection site bruising [Unknown]
  - Migraine [Unknown]
  - Sneezing [Unknown]

NARRATIVE: CASE EVENT DATE: 201209
